FAERS Safety Report 5613694-X (Version None)
Quarter: 2008Q1

REPORT INFORMATION
  Report Type: 
  Country: None (occurrence: None)
  Receive Date: 20080205
  Receipt Date: 20080129
  Transmission Date: 20080703
  Serious: Yes (Other)
  Sender: FDA-Public Use
  Company Number: US-JNJFOC-20080107352

PATIENT
  Sex: Female
  Weight: 57.15 kg

DRUGS (6)
  1. REMICADE [Suspect]
     Indication: RHEUMATOID ARTHRITIS
     Route: 042
  2. ZOLOFT [Concomitant]
     Indication: ANXIETY
  3. CARTIA XT [Concomitant]
     Indication: BLOOD PRESSURE
  4. FOLIC ACID [Concomitant]
  5. METHOTREXATE [Concomitant]
     Indication: RHEUMATOID ARTHRITIS
  6. ZYRTEC [Concomitant]
     Indication: PREMEDICATION
     Dosage: 3 DAYS BEFORE AND AFTER AN INFUSION

REACTIONS (3)
  - EMPHYSEMA [None]
  - OXYGEN SATURATION DECREASED [None]
  - PANIC ATTACK [None]
